FAERS Safety Report 7740089-5 (Version None)
Quarter: 2011Q3

REPORT INFORMATION
  Report Type: 
  Country: None (occurrence: None)
  Receive Date: 20110909
  Receipt Date: 20110412
  Transmission Date: 20111222
  Serious: No
  Sender: FDA-Public Use
  Company Number: US-BAYER-2011-033290

PATIENT
  Sex: Female

DRUGS (2)
  1. SYNTHROID [Concomitant]
  2. MIRENA [Suspect]
     Dosage: UNK

REACTIONS (2)
  - VAGINAL HAEMORRHAGE [None]
  - COITAL BLEEDING [None]
